FAERS Safety Report 18275054 (Version 1)
Quarter: 2020Q3

REPORT INFORMATION
  Report Type: Report from Study
  Country: US (occurrence: US)
  Receive Date: 20200916
  Receipt Date: 20200916
  Transmission Date: 20201103
  Serious: Yes (Other)
  Sender: FDA-Public Use
  Company Number: US-JNJFOC-A-NJ2020-208419

PATIENT
  Age: 12 Year
  Sex: Male

DRUGS (1)
  1. TRACLEER [Suspect]
     Active Substance: BOSENTAN
     Indication: HYPERTENSION
     Route: 048
     Dates: start: 20200512

REACTIONS (3)
  - Nail-patella syndrome [Unknown]
  - Dialysis [Unknown]
  - Neurogenic bladder [Unknown]
